FAERS Safety Report 19515372 (Version 7)
Quarter: 2021Q3

REPORT INFORMATION
  Report Type: Report from Study
  Country: BR (occurrence: BR)
  Receive Date: 20210710
  Receipt Date: 20210908
  Transmission Date: 20211014
  Serious: Yes (Other)
  Sender: FDA-Public Use
  Company Number: NVSC2021BR148089

PATIENT
  Age: 66 Year
  Sex: Female

DRUGS (13)
  1. FULVESTRANT. [Suspect]
     Active Substance: FULVESTRANT
     Indication: BREAST CANCER METASTATIC
     Dosage: UNK
     Route: 065
     Dates: start: 201901
  2. RIBOCICLIB. [Concomitant]
     Active Substance: RIBOCICLIB
     Dosage: UNK
     Route: 065
  3. SYSTANE (HYPROMELLOSE 2910 (4000 MPA.S)) [Concomitant]
     Active Substance: HYPROMELLOSE 2910 (4000 MPA.S)
     Indication: PRODUCT USED FOR UNKNOWN INDICATION
     Dosage: TID
     Route: 065
  4. FULVESTRANT. [Suspect]
     Active Substance: FULVESTRANT
     Dosage: QMO (STARTED BEFORE KISQALI)
     Route: 065
  5. FULVESTRANT. [Suspect]
     Active Substance: FULVESTRANT
     Dosage: UNK
     Route: 065
     Dates: start: 20210727
  6. ANASTROZOLE. [Concomitant]
     Active Substance: ANASTROZOLE
     Indication: PRODUCT USED FOR UNKNOWN INDICATION
     Dosage: UNK
     Route: 065
  7. TAMOXIFEN [Concomitant]
     Active Substance: TAMOXIFEN
     Indication: PRODUCT USED FOR UNKNOWN INDICATION
     Dosage: UNK
     Route: 065
  8. RIBOCICLIB. [Concomitant]
     Active Substance: RIBOCICLIB
     Dosage: UNK
     Route: 065
     Dates: start: 202101
  9. RIBOCICLIB. [Concomitant]
     Active Substance: RIBOCICLIB
     Dosage: UNK
     Route: 065
     Dates: start: 202101
  10. ZOMETA [Concomitant]
     Active Substance: ZOLEDRONIC ACID
     Indication: BREAST CANCER
     Dosage: Q3MO
     Route: 065
     Dates: start: 201901
  11. RIBOCICLIB. [Concomitant]
     Active Substance: RIBOCICLIB
     Indication: BREAST CANCER
     Dosage: 3 DF, QD
     Route: 065
     Dates: start: 20210104
  12. ESTROGEN [Concomitant]
     Active Substance: ESTROGENS
     Indication: PRODUCT USED FOR UNKNOWN INDICATION
     Dosage: UNK
     Route: 065
  13. EXEMESTANE. [Concomitant]
     Active Substance: EXEMESTANE
     Indication: PRODUCT USED FOR UNKNOWN INDICATION
     Dosage: UNK
     Route: 065
     Dates: start: 2018

REACTIONS (50)
  - Skin exfoliation [Recovering/Resolving]
  - Skin discolouration [Recovering/Resolving]
  - Pain in extremity [Recovering/Resolving]
  - Fatigue [Unknown]
  - Dry eye [Not Recovered/Not Resolved]
  - Pruritus [Recovering/Resolving]
  - Vulvovaginal dryness [Unknown]
  - Contusion [Not Recovered/Not Resolved]
  - Bone neoplasm [Recovered/Resolved]
  - Movement disorder [Unknown]
  - Arthralgia [Unknown]
  - Rash macular [Recovering/Resolving]
  - Erythema [Recovered/Resolved]
  - Skull fracture [Not Recovered/Not Resolved]
  - Metastases to thorax [Recovering/Resolving]
  - Face injury [Not Recovered/Not Resolved]
  - Dry throat [Not Recovered/Not Resolved]
  - Nasal discomfort [Not Recovered/Not Resolved]
  - Vascular rupture [Not Recovered/Not Resolved]
  - Stress [Unknown]
  - Metastases to spine [Not Recovered/Not Resolved]
  - Blood oestrogen decreased [Not Recovered/Not Resolved]
  - Rhinitis [Unknown]
  - Skin atrophy [Unknown]
  - Pain [Recovering/Resolving]
  - Limb injury [Recovering/Resolving]
  - Needle issue [Unknown]
  - Lymphadenopathy [Recovered/Resolved]
  - Metastases to bone [Unknown]
  - Hypokinesia [Unknown]
  - Limb discomfort [Not Recovered/Not Resolved]
  - Muscular weakness [Unknown]
  - Epistaxis [Not Recovered/Not Resolved]
  - Haematoma [Unknown]
  - Metastasis [Not Recovered/Not Resolved]
  - Injury [Unknown]
  - Feeling abnormal [Recovering/Resolving]
  - Clavicle fracture [Not Recovered/Not Resolved]
  - Skin disorder [Not Recovered/Not Resolved]
  - Drug ineffective [Unknown]
  - Injection site swelling [Recovering/Resolving]
  - Haemorrhoids [Unknown]
  - Skin fissures [Recovering/Resolving]
  - Dry skin [Not Recovered/Not Resolved]
  - Nasal dryness [Unknown]
  - Panic attack [Recovering/Resolving]
  - Peripheral swelling [Recovering/Resolving]
  - Alopecia [Not Recovered/Not Resolved]
  - Hypersensitivity [Unknown]
  - Erythema [Unknown]

NARRATIVE: CASE EVENT DATE: 2019
